FAERS Safety Report 5203915-X (Version None)
Quarter: 2007Q1

REPORT INFORMATION
  Report Type: 
  Country: None (occurrence: None)
  Receive Date: 20070109
  Receipt Date: 20070109
  Transmission Date: 20070707
  Serious: Yes (Other)
  Sender: FDA-Public Use
  Company Number: None

PATIENT
  Age: 10 Month
  Sex: Male
  Weight: 3.6288 kg

DRUGS (2)
  1. REGLAN [Suspect]
     Indication: GASTROINTESTINAL MOTILITY DISORDER
     Dosage: .75 ML FOUR TIMES DAILY ORALLY
     Route: 048
     Dates: start: 20060304
  2. CAPTOPRIL [Concomitant]

REACTIONS (6)
  - CRYING [None]
  - DIARRHOEA [None]
  - DYSKINESIA [None]
  - FAILURE TO THRIVE [None]
  - HYPERTENSION [None]
  - OPISTHOTONUS [None]
